FAERS Safety Report 6349553-7 (Version None)
Quarter: 2009Q3

REPORT INFORMATION
  Report Type: 
  Country: None (occurrence: None)
  Receive Date: 20090911
  Receipt Date: 20090903
  Transmission Date: 20100115
  Serious: Yes (Hospitalization)
  Sender: FDA-Public Use
  Company Number: JP-ABBOTT-09P-087-0581095-00

PATIENT
  Sex: Male

DRUGS (24)
  1. LUPRON DEPOT [Suspect]
     Indication: SPINAL MUSCULAR ATROPHY
     Route: 058
     Dates: start: 20071003, end: 20090512
  2. TAP-144-SR3M (PLACEBO) [Concomitant]
     Indication: SPINAL MUSCULAR ATROPHY
     Route: 058
     Dates: start: 20061025, end: 20070704
  3. ACTOS [Concomitant]
     Indication: DIABETES MELLITUS
     Route: 048
     Dates: start: 20060511
  4. THEO-DUR [Concomitant]
     Indication: ASTHMA
     Route: 048
     Dates: start: 20070419
  5. MUCODYNE [Concomitant]
     Indication: ASTHMA
     Route: 048
     Dates: start: 20060406
  6. QVAR 40 [Concomitant]
     Indication: ASTHMA
     Route: 055
     Dates: start: 20040304
  7. SEREVENT [Concomitant]
     Indication: ASTHMA
     Route: 055
     Dates: start: 20020411
  8. RHYTHMY [Concomitant]
     Indication: INSOMNIA
     Route: 048
     Dates: start: 20081204
  9. ONON [Concomitant]
     Indication: CHRONIC SINUSITIS
     Route: 048
     Dates: start: 20030317
  10. FLUNASE [Concomitant]
     Indication: CHRONIC SINUSITIS
     Route: 045
     Dates: start: 20030317
  11. LIVALO [Concomitant]
     Indication: HYPERLIPIDAEMIA
     Route: 048
     Dates: start: 20051226
  12. HEMONASE [Concomitant]
     Indication: HAEMORRHOIDS
     Route: 048
     Dates: start: 20081201
  13. NERIPROCT [Concomitant]
     Indication: HAEMORRHOIDS
     Route: 054
     Dates: start: 20081201
  14. RYUKAKUSAN [Concomitant]
     Indication: ASTHMA
     Dosage: OPTIMAL DOSE
     Route: 048
     Dates: start: 19970101
  15. MENTAX [Concomitant]
     Indication: ONYCHOMYCOSIS
     Dosage: OPTIMAL DOSE
     Route: 062
     Dates: start: 20080605
  16. MENTAX [Concomitant]
     Indication: TINEA CRURIS
  17. MOHRUS TAPE L [Concomitant]
     Indication: SPINAL MUSCULAR ATROPHY
     Dosage: OPTIMAL DOSE
     Route: 062
     Dates: start: 20080814
  18. PETROLATUM SALICYLATE [Concomitant]
     Indication: HYPERKERATOSIS
     Dosage: OPTIMAL DOSE
     Route: 062
     Dates: start: 20080731
  19. DEPAS [Concomitant]
     Indication: DEPRESSION
     Route: 048
     Dates: start: 20081204
  20. DEPAS [Concomitant]
     Indication: PROPHYLAXIS
  21. ELCITONIN [Concomitant]
     Indication: OSTEOPOROSIS
     Route: 058
     Dates: start: 20081205
  22. BONALON [Concomitant]
     Indication: OSTEOPOROSIS
     Route: 048
     Dates: start: 20081205
  23. METHYCOBAL [Concomitant]
     Indication: HYPOAESTHESIA
     Route: 048
     Dates: start: 20090416
  24. JUVELA N [Concomitant]
     Indication: HYPOAESTHESIA
     Route: 048
     Dates: start: 20090416

REACTIONS (1)
  - LOWER LIMB FRACTURE [None]
